FAERS Safety Report 18708050 (Version 3)
Quarter: 2021Q1

REPORT INFORMATION
  Report Type: Report from Study
  Country: DE (occurrence: DE)
  Receive Date: 20210106
  Receipt Date: 20210205
  Transmission Date: 20210419
  Serious: Yes (Hospitalization)
  Sender: FDA-Public Use
  Company Number: DE-SA-2020SA372647

PATIENT
  Age: 57 Year
  Sex: Male
  Weight: 109 kg

DRUGS (8)
  1. 5?FU [Suspect]
     Active Substance: FLUOROURACIL
     Dosage: 6400 MG, QCY
     Route: 042
     Dates: start: 20201124, end: 20201124
  2. OXALIPLATIN. [Suspect]
     Active Substance: OXALIPLATIN
     Dosage: 200 MG, QCY
     Route: 042
     Dates: start: 20201124, end: 20201124
  3. CALCIUM LEVOFOLINATE [Suspect]
     Active Substance: LEVOLEUCOVORIN CALCIUM
     Indication: COLORECTAL CANCER METASTATIC
     Dosage: 810 MG, QCY
     Route: 042
     Dates: start: 20201208, end: 20201208
  4. AFLIBERCEPT [Suspect]
     Active Substance: AFLIBERCEPT
     Indication: COLORECTAL CANCER METASTATIC
     Dosage: 450 MG, QCY
     Route: 042
     Dates: start: 20201208, end: 20201208
  5. 5?FU [Suspect]
     Active Substance: FLUOROURACIL
     Indication: COLORECTAL CANCER METASTATIC
     Dosage: 6400 MG, QCY
     Route: 042
     Dates: start: 20201208, end: 20201208
  6. OXALIPLATIN. [Suspect]
     Active Substance: OXALIPLATIN
     Indication: COLORECTAL CANCER METASTATIC
     Dosage: 200 MG, QCY
     Route: 042
     Dates: start: 20201208, end: 20201208
  7. AFLIBERCEPT [Suspect]
     Active Substance: AFLIBERCEPT
     Dosage: 450 MG, QCY
     Route: 042
     Dates: start: 20201124, end: 20201124
  8. CALCIUM LEVOFOLINATE [Suspect]
     Active Substance: LEVOLEUCOVORIN CALCIUM
     Dosage: 810 MG
     Route: 042
     Dates: start: 20201124, end: 20201124

REACTIONS (1)
  - Gastrointestinal pain [Recovered/Resolved]

NARRATIVE: CASE EVENT DATE: 20201222
